FAERS Safety Report 11697823 (Version 3)
Quarter: 2017Q1

REPORT INFORMATION
  Report Type: Report from Study
  Country: US (occurrence: US)
  Receive Date: 20151104
  Receipt Date: 20170327
  Transmission Date: 20170428
  Serious: Yes (Other)
  Sender: FDA-Public Use
  Company Number: US-JNJFOC-20151012603

PATIENT
  Sex: Female

DRUGS (19)
  1. ZYRTEC [Concomitant]
     Active Substance: CETIRIZINE HYDROCHLORIDE
  2. ELIQUIS [Concomitant]
     Active Substance: APIXABAN
  3. METFORMIN [Concomitant]
     Active Substance: METFORMIN HYDROCHLORIDE
  4. IRON [Concomitant]
     Active Substance: IRON
  5. DYMISTA [Concomitant]
     Active Substance: AZELASTINE HYDROCHLORIDE\FLUTICASONE PROPIONATE
  6. SIMVASTATIN. [Concomitant]
     Active Substance: SIMVASTATIN
  7. FLECAINIDE ACETATE. [Concomitant]
     Active Substance: FLECAINIDE ACETATE
  8. METOPROLOL. [Concomitant]
     Active Substance: METOPROLOL
  9. VAGIFEM [Concomitant]
     Active Substance: ESTRADIOL
  10. IMBRUVICA [Suspect]
     Active Substance: IBRUTINIB
     Indication: CHRONIC LYMPHOCYTIC LEUKAEMIA
     Route: 065
     Dates: start: 20161225
  11. METOPROLOL SUCCINATE. [Concomitant]
     Active Substance: METOPROLOL SUCCINATE
  12. DUREZOL [Concomitant]
     Active Substance: DIFLUPREDNATE
  13. IMBRUVICA [Suspect]
     Active Substance: IBRUTINIB
     Indication: CHRONIC LYMPHOCYTIC LEUKAEMIA
     Route: 065
     Dates: start: 20140115
  14. NAPROXEN. [Concomitant]
     Active Substance: NAPROXEN
  15. VITAMIN D [Concomitant]
     Active Substance: CHOLECALCIFEROL
  16. ASPIRIN. [Concomitant]
     Active Substance: ASPIRIN
  17. FOLIC ACID. [Concomitant]
     Active Substance: FOLIC ACID
  18. FLECAINIDE [Concomitant]
     Active Substance: FLECAINIDE
  19. CENTRUM SILVER [Concomitant]
     Active Substance: MINERALS\VITAMINS

REACTIONS (6)
  - Cataract [Unknown]
  - Retinal oedema [Unknown]
  - Uveitis [Not Recovered/Not Resolved]
  - Eye haemorrhage [Unknown]
  - Vitreous floaters [Unknown]
  - Visual impairment [Recovered/Resolved]
